FAERS Safety Report 5316286-5 (Version None)
Quarter: 2007Q2

REPORT INFORMATION
  Report Type: 
  Country: None (occurrence: None)
  Receive Date: 20070503
  Receipt Date: 20070427
  Transmission Date: 20071010
  Serious: Yes (Hospitalization)
  Sender: FDA-Public Use
  Company Number: US-ABBOTT-07P-163-0366466-00

PATIENT
  Sex: Female
  Weight: 56.75 kg

DRUGS (12)
  1. HUMIRA [Suspect]
     Indication: CROHN'S DISEASE
     Route: 058
     Dates: start: 20060801, end: 20060901
  2. FENTANYL TRANSDERMAL SYSTEM [Concomitant]
     Indication: PAIN
     Route: 062
  3. FENTORA [Concomitant]
     Indication: PAIN
     Route: 048
  4. CRYSTALLINE VIT B12 INJ [Concomitant]
     Indication: SMALL INTESTINAL RESECTION
     Route: 030
  5. CRYSTALLINE VIT B12 INJ [Concomitant]
     Indication: INTESTINAL RESECTION
  6. SERTRALINE HYDROCHLORIDE [Concomitant]
     Indication: ANTIDEPRESSANT THERAPY
     Route: 048
  7. PANTOPRAZOLE [Concomitant]
     Indication: GASTROOESOPHAGEAL REFLUX DISEASE
     Route: 048
  8. PREDNISONE [Concomitant]
     Indication: CROHN'S DISEASE
     Route: 048
  9. AMBIEN CR [Concomitant]
     Indication: INSOMNIA
     Route: 048
  10. NORTRIPTYL [Concomitant]
     Indication: PAIN
     Route: 048
  11. GABAPENTIN [Concomitant]
     Indication: PAIN
     Route: 048
  12. ORTHO TRI-CYCLEN LO [Concomitant]
     Indication: ENDOMETRIOSIS
     Route: 048

REACTIONS (5)
  - CHEST DISCOMFORT [None]
  - HYPOAESTHESIA [None]
  - MUSCLE TWITCHING [None]
  - PARALYSIS [None]
  - URINARY RETENTION [None]
